FAERS Safety Report 4769972-X (Version None)
Quarter: 2005Q3

REPORT INFORMATION
  Report Type: 
  Country: None (occurrence: None)
  Receive Date: 20050915
  Receipt Date: 20050902
  Transmission Date: 20060218
  Serious: Yes (Other)
  Sender: FDA-Public Use
  Company Number: PHBS2005JP13018

PATIENT

DRUGS (3)
  1. AREDIA [Suspect]
     Indication: METASTASES TO BONE
     Dosage: 90 MG
     Route: 042
     Dates: start: 20050701
  2. CYCLOPHOSPHAMIDE + DOXORUBICIN + 5-FU [Suspect]
  3. LOXONIN [Concomitant]
     Route: 048

REACTIONS (7)
  - ASEPTIC NECROSIS BONE [None]
  - BONE DISORDER [None]
  - GINGIVAL OPERATION [None]
  - GINGIVITIS [None]
  - STOMATITIS [None]
  - TOOTH DISORDER [None]
  - TUMOUR ULCERATION [None]
